FAERS Safety Report 5327745-3 (Version None)
Quarter: 2007Q2

REPORT INFORMATION
  Report Type: 
  Country: None (occurrence: None)
  Receive Date: 20070222
  Receipt Date: 20060921
  Transmission Date: 20071010
  Serious: Yes (Hospitalization, Other)
  Sender: FDA-Public Use
  Company Number: 30787

PATIENT
  Sex: Female
  Weight: 78 kg

DRUGS (2)
  1. DAUNORUBICIN HYDROCHLORIDE [Suspect]
  2. .. [Concomitant]

REACTIONS (1)
  - CARDIAC FAILURE CONGESTIVE [None]
